FAERS Safety Report 24651427 (Version 3)
Quarter: 2025Q2

REPORT INFORMATION
  Report Type: Spontaneous
  Country: US (occurrence: US)
  Receive Date: 20241122
  Receipt Date: 20250509
  Transmission Date: 20250717
  Serious: Yes (Other)
  Sender: GLAXOSMITHKLINE
  Company Number: US-GLAXOSMITHKLINE INC-US2024AMR142788

PATIENT

DRUGS (3)
  1. BENLYSTA [Suspect]
     Active Substance: BELIMUMAB
     Indication: Systemic lupus erythematosus
     Dosage: 200 MG/ML, WE
     Route: 058
  2. BENLYSTA [Suspect]
     Active Substance: BELIMUMAB
     Indication: Rheumatoid arthritis
     Dosage: 200 MG, WE
     Route: 058
  3. BENLYSTA [Suspect]
     Active Substance: BELIMUMAB

REACTIONS (8)
  - Psoriatic arthropathy [Unknown]
  - Surgery [Unknown]
  - Injection site vesicles [Recovered/Resolved with Sequelae]
  - Illness [Unknown]
  - Rash erythematous [Recovered/Resolved]
  - Rash [Recovered/Resolved with Sequelae]
  - Exfoliative rash [Recovered/Resolved with Sequelae]
  - Product use in unapproved indication [Unknown]
